FAERS Safety Report 24445320 (Version 2)
Quarter: 2024Q4

REPORT INFORMATION
  Report Type: Report from Study
  Country: US (occurrence: US)
  Receive Date: 20241016
  Receipt Date: 20241018
  Transmission Date: 20250114
  Serious: Yes (Death, Other)
  Sender: ABBVIE
  Company Number: US-ABBVIE-5965451

PATIENT
  Sex: Male

DRUGS (2)
  1. DUOPA [Suspect]
     Active Substance: CARBIDOPA\LEVODOPA
     Indication: Parkinson^s disease
     Dosage: 1 CASSETTE 16 HOURS EACH DAY. MORNING DOSE: 9.5ML, CONTINUOUS DOSE: 3.7ML/HR, EXTRA DOSE: 1.8ML?S...
     Route: 050
     Dates: start: 202401
  2. DUOPA [Suspect]
     Active Substance: CARBIDOPA\LEVODOPA
     Indication: Parkinson^s disease
     Dosage: 1 CASSETTE 16 HOURS EACH DAY. MORNING DOSE: 9.5ML, CONTINUOUS DOSE: 3.7ML/HR, EXTRA DOSE: 1.8ML?S...
     Route: 050
     Dates: start: 2024, end: 2024

REACTIONS (2)
  - Death [Fatal]
  - Hospice care [Unknown]

NARRATIVE: CASE EVENT DATE: 20240101
